FAERS Safety Report 11632686 (Version 2)
Quarter: 2015Q4

REPORT INFORMATION
  Report Type: Spontaneous
  Country: JP (occurrence: JP)
  Receive Date: 20151015
  Receipt Date: 20151113
  Transmission Date: 20160304
  Serious: Yes (Disabling, Other)
  Sender: FDA-Public Use
  Company Number: JP-TAKEDA-2015MPI006629

PATIENT

DRUGS (7)
  1. VELCADE [Suspect]
     Active Substance: BORTEZOMIB
     Indication: PLASMA CELL MYELOMA
     Dosage: 1.3 MG, UNK
     Route: 058
     Dates: start: 20150611, end: 20150723
  2. BAKTAR [Concomitant]
     Active Substance: SULFAMETHOXAZOLE\TRIMETHOPRIM
     Route: 048
  3. PREDNISOLONE. [Suspect]
     Active Substance: PREDNISOLONE
     Indication: PLASMA CELL MYELOMA
     Dosage: 70 MG, QD
     Route: 048
     Dates: start: 20150611, end: 20150723
  4. MELPHALAN [Suspect]
     Active Substance: MELPHALAN
     Indication: PLASMA CELL MYELOMA
     Dosage: 8 MG, QD
     Route: 048
     Dates: start: 20150611, end: 20150723
  5. LANSOPRAZOLE. [Concomitant]
     Active Substance: LANSOPRAZOLE
     Route: 048
  6. ACICLOVIR                          /00587302/ [Concomitant]
     Route: 065
  7. ZYLORIC [Concomitant]
     Active Substance: ALLOPURINOL
     Route: 048

REACTIONS (4)
  - Bone fissure [Unknown]
  - Bladder disorder [Unknown]
  - Anorectal disorder [Unknown]
  - Neuropathy peripheral [Not Recovered/Not Resolved]

NARRATIVE: CASE EVENT DATE: 20150702
